FAERS Safety Report 17147232 (Version 1)
Quarter: 2019Q4

REPORT INFORMATION
  Report Type: Spontaneous
  Country: GB (occurrence: GB)
  Receive Date: 20191212
  Receipt Date: 20191212
  Transmission Date: 20200122
  Serious: Yes (Hospitalization)
  Sender: FDA-Public Use
  Company Number: GB-PFIZER INC-2019529878

PATIENT
  Age: 21 Year
  Sex: Female

DRUGS (4)
  1. SULFASALAZINE. [Suspect]
     Active Substance: SULFASALAZINE
     Indication: ARTHRITIS
     Dosage: 500 MG, UNK
     Route: 048
     Dates: start: 20190912
  2. SULFASALAZINE. [Suspect]
     Active Substance: SULFASALAZINE
     Dosage: 4 G, 1X/DAY
     Route: 048
     Dates: end: 20191007
  3. PREDNISOLONE. [Concomitant]
     Active Substance: PREDNISOLONE
     Dosage: 15 MG, 1X/DAY
  4. OMEPRAZOLE. [Concomitant]
     Active Substance: OMEPRAZOLE
     Dosage: UNK

REACTIONS (9)
  - Erythema [Recovered/Resolved]
  - C-reactive protein increased [Unknown]
  - Malaise [Recovered/Resolved]
  - Pruritus [Recovered/Resolved]
  - Drug reaction with eosinophilia and systemic symptoms [Recovered/Resolved]
  - Rash macular [Recovered/Resolved]
  - Swelling face [Recovered/Resolved]
  - Stevens-Johnson syndrome [Recovered/Resolved]
  - Pallor [Recovering/Resolving]

NARRATIVE: CASE EVENT DATE: 20191006
